FAERS Safety Report 9037852 (Version 1)
Quarter: 2013Q1

REPORT INFORMATION
  Report Type: Report from Study
  Country: US (occurrence: US)
  Receive Date: 20130129
  Receipt Date: 20130129
  Transmission Date: 20140127
  Serious: No
  Sender: FDA-Public Use
  Company Number: US-ABBOTT-12P-163-0900480-00

PATIENT
  Age: 52 Year
  Sex: Female
  Weight: 59.93 kg

DRUGS (11)
  1. HUMIRA 40 MG/0.8 ML PEN [Suspect]
     Indication: CROHN^S DISEASE
  2. IMURAN [Concomitant]
     Indication: CROHN^S DISEASE
  3. CYMBALTA [Concomitant]
     Indication: DEPRESSION
  4. LOMOTIL [Concomitant]
     Indication: DIARRHOEA
  5. OMEPRAZOLE [Concomitant]
     Indication: GASTROOESOPHAGEAL REFLUX DISEASE
  6. CHOLESTEROLMINE [Concomitant]
     Indication: DIARRHOEA
  7. BUPROPRIONE [Concomitant]
     Indication: DEPRESSION
  8. DIAZEPAM [Concomitant]
     Indication: ANXIETY
  9. OXYCONTIN [Concomitant]
     Indication: PAIN
  10. MAXALT [Concomitant]
     Indication: MIGRAINE
  11. VESICARE [Concomitant]
     Indication: HYPERTONIC BLADDER

REACTIONS (3)
  - Oropharyngeal pain [Recovered/Resolved]
  - Sinus headache [Recovered/Resolved]
  - Cough [Recovered/Resolved]
